FAERS Safety Report 8489989-1 (Version None)
Quarter: 2012Q3

REPORT INFORMATION
  Report Type: 
  Country: None (occurrence: None)
  Receive Date: 20120705
  Receipt Date: 20120626
  Transmission Date: 20120928
  Serious: Yes (Other)
  Sender: FDA-Public Use
  Company Number: ZA-JNJFOC-20120700607

PATIENT

DRUGS (5)
  1. DOXORUBICIN HCL [Suspect]
     Indication: KAPOSI'S SARCOMA AIDS RELATED
     Route: 042
  2. VINCRISTINE [Suspect]
     Indication: KAPOSI'S SARCOMA AIDS RELATED
     Route: 042
  3. BLEOMYCIN SULFATE [Suspect]
     Indication: KAPOSI'S SARCOMA AIDS RELATED
     Dosage: 10 U/M2
     Route: 042
  4. LAMIVUDINE STAVUDINE NEVIRAPINE [Suspect]
     Indication: KAPOSI'S SARCOMA AIDS RELATED
     Route: 065
  5. ETOPOSIDE [Suspect]
     Indication: KAPOSI'S SARCOMA AIDS RELATED
     Dosage: 50-100 MG FOR 1-21 DAYS OF A 28 DAY CYCLE.
     Route: 048

REACTIONS (1)
  - PNEUMOCYSTIS JIROVECI PNEUMONIA [None]
